FAERS Safety Report 16684948 (Version 1)
Quarter: 2019Q3

REPORT INFORMATION
  Report Type: Report from Study
  Country: US (occurrence: US)
  Receive Date: 20190808
  Receipt Date: 20190808
  Transmission Date: 20191004
  Serious: Yes (Other)
  Sender: FDA-Public Use
  Company Number: US-OTSUKA-2019_028255

PATIENT
  Sex: Male

DRUGS (1)
  1. DEXTROMETHORPHAN/QUINIDINE [Suspect]
     Active Substance: DEXTROMETHORPHAN HYDROBROMIDE\QUINIDINE SULFATE
     Indication: PRODUCT USED FOR UNKNOWN INDICATION
     Dosage: UNK
     Route: 065

REACTIONS (8)
  - Feeling abnormal [Unknown]
  - Loss of personal independence in daily activities [Unknown]
  - Pain [Unknown]
  - Gait disturbance [Unknown]
  - Therapeutic response unexpected [Unknown]
  - Transient ischaemic attack [Unknown]
  - Unevaluable event [Unknown]
  - Homeless [Unknown]
